FAERS Safety Report 9941885 (Version 1)
Quarter: 2014Q1

REPORT INFORMATION
  Report Type: Report from Study
  Country: US (occurrence: US)
  Receive Date: 20140303
  Receipt Date: 20140303
  Transmission Date: 20141002
  Serious: No
  Sender: FDA-Public Use
  Company Number: US-ABBVIE-13P-163-1038926-00

PATIENT
  Age: 64 Year
  Sex: Female

DRUGS (10)
  1. HUMIRA [Suspect]
     Indication: CROHN^S DISEASE
     Route: 058
     Dates: start: 20121231, end: 20121231
  2. HUMIRA [Suspect]
     Route: 058
     Dates: start: 20130114
  3. METHOTREXATE [Concomitant]
     Indication: CROHN^S DISEASE
     Dosage: 8 EVERY FRIDAY
  4. HYOSCYAMINE [Concomitant]
     Indication: CROHN^S DISEASE
  5. CARAFATE [Concomitant]
     Indication: ABDOMINAL DISCOMFORT
  6. ATENOLOL [Concomitant]
     Indication: HYPERTENSION
     Dosage: EVERY NIGHT
  7. SIMVASTATIN [Concomitant]
     Indication: BLOOD CHOLESTEROL INCREASED
     Dosage: DAILY
  8. FOLIC ACID [Concomitant]
     Indication: PRODUCT USED FOR UNKNOWN INDICATION
  9. ASA [Concomitant]
     Indication: ANTICOAGULANT THERAPY
  10. DEXILANT [Concomitant]
     Indication: GASTROOESOPHAGEAL REFLUX DISEASE

REACTIONS (3)
  - Nodule [Recovering/Resolving]
  - Local swelling [Recovering/Resolving]
  - Epistaxis [Recovering/Resolving]
